FAERS Safety Report 9276621 (Version 2)
Quarter: 2013Q2

REPORT INFORMATION
  Report Type: Spontaneous
  Country: US (occurrence: US)
  Receive Date: 20130507
  Receipt Date: 20130527
  Transmission Date: 20140414
  Serious: No
  Sender: FDA-Public Use
  Company Number: US-009507513-1305USA001143

PATIENT
  Age: 45 Year
  Sex: Male

DRUGS (5)
  1. FINASTERIDE [Suspect]
     Indication: ALOPECIA
     Dosage: 1 MG, QD
     Route: 048
     Dates: start: 201302
  2. PROPECIA [Suspect]
     Indication: ALOPECIA
     Route: 048
  3. MINOCYCLINE [Concomitant]
  4. SINGULAIR [Concomitant]
  5. DOXEPIN [Concomitant]

REACTIONS (2)
  - Alopecia [Not Recovered/Not Resolved]
  - Libido decreased [Not Recovered/Not Resolved]
